FAERS Safety Report 10045397 (Version 1)
Quarter: 2014Q1

REPORT INFORMATION
  Report Type: Spontaneous
  Country: US (occurrence: None)
  Receive Date: 20140306
  Receipt Date: 20140306
  Transmission Date: 20141002
  Serious: Yes (Other)
  Sender: FDA-Public Use
  Company Number: 163-21880-13064171

PATIENT
  Age: 65 Year
  Sex: Female

DRUGS (11)
  1. REVLIMID (LENALIDOMIDE) (25 MILLIGRAM, CAPSULES) [Suspect]
     Indication: PLASMA CELL MYELOMA
     Route: 048
     Dates: start: 20130628, end: 2013
  2. PREMARIN (ESTROGENS CONJUGATED) [Concomitant]
  3. ZOLOFT (SERTRALINE HYDROCHLORIDE) [Concomitant]
  4. PROTONIX [Concomitant]
  5. COLACE (DOCUSATE SODIUM) [Concomitant]
  6. TYLENOL (PARACETAMOL) [Concomitant]
  7. ZOFRAN (ONDANSETRON HYDROCHLORIDE) [Concomitant]
  8. PROCHLORPERAZINE [Concomitant]
  9. KCL (POTASSIUM CHLORIDE) [Concomitant]
  10. ECOTRIN (ACETYLSALICYLIC ACID) [Concomitant]
  11. COUMADIN (WARFARIN SODIUM) [Concomitant]

REACTIONS (1)
  - Renal failure [None]
